FAERS Safety Report 24537240 (Version 2)
Quarter: 2025Q2

REPORT INFORMATION
  Report Type: Spontaneous
  Country: US (occurrence: US)
  Receive Date: 20241022
  Receipt Date: 20250510
  Transmission Date: 20250717
  Serious: No
  Sender: SANOFI AVENTIS
  Company Number: US-SA-2024SA301741

PATIENT
  Age: 70 Year
  Sex: Female

DRUGS (2)
  1. DUPIXENT [Suspect]
     Active Substance: DUPILUMAB
     Indication: Dermatitis atopic
     Dosage: 300 MG, QOW
     Route: 058
  2. SERTRALINE [Concomitant]
     Active Substance: SERTRALINE HYDROCHLORIDE
     Indication: Depression

REACTIONS (13)
  - Nightmare [Unknown]
  - Weight increased [Unknown]
  - Dry skin [Unknown]
  - Skin haemorrhage [Unknown]
  - Skin weeping [Unknown]
  - Depressed mood [Unknown]
  - Skin fissures [Unknown]
  - Chest pain [Unknown]
  - Sneezing [Unknown]
  - Cough [Unknown]
  - Contusion [Unknown]
  - Skin exfoliation [Unknown]
  - Rash [Unknown]
